FAERS Safety Report 19652407 (Version 1)
Quarter: 2021Q3

REPORT INFORMATION
  Report Type: Spontaneous
  Country: US (occurrence: US)
  Receive Date: 20210803
  Receipt Date: 20210803
  Transmission Date: 20211014
  Serious: No
  Sender: FDA-Public Use
  Company Number: US-SA-2021SA254253

PATIENT
  Age: 20 Year
  Sex: Male

DRUGS (1)
  1. DUPIXENT [Suspect]
     Active Substance: DUPILUMAB
     Indication: DERMATITIS ATOPIC
     Dosage: 300 MG/2 ML, QOW
     Route: 058
     Dates: start: 20190602

REACTIONS (5)
  - COVID-19 [Unknown]
  - SARS-CoV-2 test positive [Unknown]
  - Pruritus [Unknown]
  - Therapeutic response shortened [Unknown]
  - Rash macular [Unknown]

NARRATIVE: CASE EVENT DATE: 20210725
